FAERS Safety Report 5989719-9 (Version None)
Quarter: 2008Q4

REPORT INFORMATION
  Report Type: 
  Country: None (occurrence: None)
  Receive Date: 20081210
  Receipt Date: 20081126
  Transmission Date: 20090506
  Serious: No
  Sender: FDA-Public Use
  Company Number: US-B.I. PHARMACEUTICALS,INC./RIDGEFIELD-2008-BP-17976BP

PATIENT
  Sex: Male

DRUGS (5)
  1. COMBIVENT [Suspect]
     Indication: CHRONIC OBSTRUCTIVE PULMONARY DISEASE
     Route: 055
     Dates: start: 20030101
  2. LORAZEPAM [Concomitant]
     Indication: ANXIETY
     Dosage: 2MG
     Route: 048
  3. TRAZADOL [Concomitant]
     Indication: PAIN
     Route: 048
  4. TYLENOL (CAPLET) [Concomitant]
     Indication: PAIN
     Route: 048
  5. NEURONTIN [Concomitant]
     Indication: PAIN
     Dosage: 300MG
     Route: 048
     Dates: start: 20080501

REACTIONS (1)
  - DRY MOUTH [None]
